FAERS Safety Report 7372091-X (Version None)
Quarter: 2011Q1

REPORT INFORMATION
  Report Type: 
  Country: None (occurrence: None)
  Receive Date: 20110324
  Receipt Date: 20110315
  Transmission Date: 20110831
  Serious: Yes (Other)
  Sender: FDA-Public Use
  Company Number: BR-ASTRAZENECA-2011SE14757

PATIENT
  Age: 77 Year
  Sex: Female
  Weight: 52 kg

DRUGS (7)
  1. DONAREN [Concomitant]
     Indication: OSTEOPOROSIS
     Dosage: DAILY
     Route: 048
     Dates: start: 20100101, end: 20110101
  2. ATENOLOL+CLORTALIDONE [Concomitant]
     Indication: HYPERTENSION
     Dosage: DAILY
     Route: 048
     Dates: start: 20070101
  3. DAFLON [Concomitant]
     Route: 048
     Dates: start: 20110101
  4. PURAN T4 [Concomitant]
     Indication: THYROID DISORDER
     Route: 048
     Dates: start: 20060101
  5. DAFLON [Concomitant]
     Indication: VARICOSE VEIN
     Route: 048
     Dates: start: 20090101, end: 20100101
  6. ATACAND [Suspect]
     Indication: HYPERTENSION
     Route: 048
     Dates: start: 20100901, end: 20110201
  7. ATACAND [Suspect]
     Route: 048
     Dates: start: 20110201, end: 20110301

REACTIONS (3)
  - BLOOD PRESSURE INADEQUATELY CONTROLLED [None]
  - PAIN IN EXTREMITY [None]
  - MEMORY IMPAIRMENT [None]
